FAERS Safety Report 11791661 (Version 1)
Quarter: 2015Q4

REPORT INFORMATION
  Report Type: Spontaneous
  Country: US (occurrence: US)
  Receive Date: 20151201
  Receipt Date: 20151201
  Transmission Date: 20160305
  Serious: Yes (Other)
  Sender: FDA-Public Use
  Company Number: US-BAYER-2015-472476

PATIENT
  Age: 14 Year
  Sex: Female
  Weight: 55.33 kg

DRUGS (1)
  1. ALKA-SELTZER PLUS DAY NON DROWSY COLD MEDICINE CITRUS [Suspect]
     Active Substance: ASPIRIN\DEXTROMETHORPHAN HYDROBROMIDE\PHENYLEPHRINE BITARTRATE
     Indication: NASOPHARYNGITIS
     Dosage: UNK
     Route: 048
     Dates: start: 20151118, end: 20151118

REACTIONS (2)
  - Haematemesis [Recovered/Resolved]
  - Wrong technique in product usage process [None]

NARRATIVE: CASE EVENT DATE: 20151118
